FAERS Safety Report 11899253 (Version 2)
Quarter: 2016Q1

REPORT INFORMATION
  Report Type: Report from Study
  Country: US (occurrence: US)
  Receive Date: 20160108
  Receipt Date: 20160128
  Transmission Date: 20160526
  Serious: Yes (Hospitalization, Other)
  Sender: FDA-Public Use
  Company Number: US-BRISTOL-MYERS SQUIBB COMPANY-BMS-2015-092941

PATIENT
  Age: 62 Year
  Sex: Male
  Weight: 100.9 kg

DRUGS (2)
  1. IPILIMUMAB [Suspect]
     Active Substance: IPILIMUMAB
     Indication: LEIOMYOSARCOMA
     Dosage: 1 MG/KG, QCYCLE 97MG
     Route: 042
     Dates: start: 20151014
  2. NIVOLUMAB [Suspect]
     Active Substance: NIVOLUMAB
     Indication: LEIOMYOSARCOMA
     Dosage: 3 MG/KG, QCYCLE,291MG
     Route: 042
     Dates: start: 20151014

REACTIONS (2)
  - Hyponatraemia [Recovered/Resolved]
  - Adrenal insufficiency [Recovered/Resolved]

NARRATIVE: CASE EVENT DATE: 20151216
